FAERS Safety Report 15747446 (Version 2)
Quarter: 2020Q2

REPORT INFORMATION
  Report Type: Spontaneous
  Country: US (occurrence: US)
  Receive Date: 20181220
  Receipt Date: 20200527
  Transmission Date: 20200713
  Serious: Yes (Hospitalization, Other)
  Sender: FDA-Public Use
  Company Number: US-BRISTOL-MYERS SQUIBB COMPANY-BMS-2018-117186

PATIENT
  Age: 69 Year
  Sex: Female
  Weight: 67 kg

DRUGS (2)
  1. OSIMERTINIB. [Suspect]
     Active Substance: OSIMERTINIB
     Indication: NON-SMALL CELL LUNG CANCER
     Dosage: 80 MG, QD
     Route: 048
  2. DASATINIB. [Suspect]
     Active Substance: DASATINIB
     Indication: NON-SMALL CELL LUNG CANCER
     Dosage: 50 MG, QD
     Route: 048
     Dates: start: 20180503

REACTIONS (2)
  - Intentional product use issue [Unknown]
  - Partial seizures [Recovering/Resolving]

NARRATIVE: CASE EVENT DATE: 20181209
